FAERS Safety Report 7520714-4 (Version None)
Quarter: 2011Q2

REPORT INFORMATION
  Report Type: 
  Country: None (occurrence: None)
  Receive Date: 20110603
  Receipt Date: 20101008
  Transmission Date: 20111010
  Serious: Yes (Life-Threatening, Other)
  Sender: FDA-Public Use
  Company Number: JP-BAYER-200912877BYL

PATIENT
  Age: 74 Year
  Sex: Male
  Weight: 69 kg

DRUGS (10)
  1. NEXAVAR [Suspect]
     Dosage: 400 MG (DAILY DOSE), QD, ORAL
     Route: 048
     Dates: start: 20091106, end: 20100113
  2. LOPERAMIDE HCL [Concomitant]
     Indication: PROPHYLAXIS
     Dosage: AT DIARRHOEA
     Route: 048
     Dates: start: 20090707
  3. NEXAVAR [Suspect]
     Indication: HEPATIC NEOPLASM MALIGNANT
     Dosage: 800 MG (DAILY DOSE), , ORAL
     Route: 048
     Dates: start: 20090707, end: 20090713
  4. UREPEARL [Concomitant]
     Indication: PROPHYLAXIS
     Route: 061
     Dates: start: 20090707
  5. NEXAVAR [Suspect]
     Dosage: 400 MG (DAILY DOSE), , ORAL
     Route: 048
     Dates: start: 20090714, end: 20090826
  6. NEXAVAR [Suspect]
     Dosage: 800 MG (DAILY DOSE), QOD, ORAL
     Route: 048
     Dates: start: 20100408, end: 20100624
  7. NEXAVAR [Suspect]
     Dosage: DAILY DOSE 600 MG
     Route: 048
     Dates: start: 20100114, end: 20100407
  8. NEXAVAR [Suspect]
     Dosage: 800 MG (DAILY DOSE), , ORAL
     Route: 048
     Dates: start: 20090827, end: 20091105
  9. ZADITEN [Concomitant]
     Indication: PROPHYLAXIS
     Dosage: AT FEEL ICHY
     Route: 048
     Dates: start: 20090707
  10. PRIMPERAN TAB [Concomitant]
     Indication: PROPHYLAXIS
     Dosage: AT NAUSEA
     Route: 048
     Dates: start: 20090707

REACTIONS (8)
  - DYSPHONIA [None]
  - LIVER DISORDER [None]
  - DECREASED APPETITE [None]
  - DIARRHOEA [None]
  - DEPRESSION [None]
  - HYPERTENSION [None]
  - ALOPECIA [None]
  - FATIGUE [None]
